FAERS Safety Report 9351805 (Version 1)
Quarter: 2013Q2

REPORT INFORMATION
  Report Type: Spontaneous
  Country: US (occurrence: US)
  Receive Date: 20130617
  Receipt Date: 20130617
  Transmission Date: 20140414
  Serious: No
  Sender: FDA-Public Use
  Company Number: US-UPSHER-SMITH LABORATORIES, INC.-13000295

PATIENT
  Age: 77 Year
  Sex: Female

DRUGS (6)
  1. PACERONE (USL) [Suspect]
     Indication: ATRIAL FIBRILLATION
     Dosage: 200 MG, QD
     Route: 048
     Dates: start: 201211, end: 201301
  2. PACERONE (USL) [Suspect]
     Indication: ATRIAL FLUTTER
     Dosage: 150 MG, QD
     Route: 048
     Dates: start: 201301
  3. LOSARTAN [Concomitant]
     Indication: HYPERTENSION
     Dosage: UNK
  4. METOPROLOL [Concomitant]
     Indication: HYPERTENSION
     Dosage: UNK
  5. SYNTHROID [Concomitant]
     Indication: HYPOTHYROIDISM
     Dosage: UNK
  6. WARFARIN [Concomitant]
     Indication: ATRIAL FIBRILLATION
     Dosage: UNK

REACTIONS (8)
  - Corneal deposits [Not Recovered/Not Resolved]
  - Vision blurred [Not Recovered/Not Resolved]
  - Visual acuity reduced [Not Recovered/Not Resolved]
  - Photophobia [Not Recovered/Not Resolved]
  - Halo vision [Not Recovered/Not Resolved]
  - International normalised ratio decreased [Unknown]
  - Tremor [Recovering/Resolving]
  - Decreased appetite [Not Recovered/Not Resolved]
